FAERS Safety Report 19238105 (Version 1)
Quarter: 2021Q2

REPORT INFORMATION
  Report Type: Spontaneous
  Country: FR (occurrence: FR)
  Receive Date: 20210510
  Receipt Date: 20210510
  Transmission Date: 20210717
  Serious: Yes (Other)
  Sender: FDA-Public Use
  Company Number: NVSC2021FR058579

PATIENT
  Age: 87 Year
  Sex: Female
  Weight: 25.31 kg

DRUGS (3)
  1. AMITRIPTYLINE HYDROCHLORIDE. [Suspect]
     Active Substance: AMITRIPTYLINE HYDROCHLORIDE
     Indication: PRODUCT USED FOR UNKNOWN INDICATION
     Dosage: 10 DRP (10 GTT DROPS)
     Route: 048
     Dates: start: 20210219
  2. ZOPICLONE [Suspect]
     Active Substance: ZOPICLONE
     Indication: WRONG PATIENT RECEIVED PRODUCT
     Dosage: 7.5 MG
     Route: 065
     Dates: start: 20210219
  3. TOPALGIC LP [Suspect]
     Active Substance: TRAMADOL HYDROCHLORIDE
     Indication: PRODUCT USED FOR UNKNOWN INDICATION
     Dosage: 1 DF
     Route: 048
     Dates: start: 20210219

REACTIONS (4)
  - Asthenia [Recovered/Resolved]
  - Intentional product misuse [Unknown]
  - Hypotension [Recovered/Resolved]
  - Wrong patient received product [Unknown]

NARRATIVE: CASE EVENT DATE: 20210219
